FAERS Safety Report 7601883-4 (Version None)
Quarter: 2011Q3

REPORT INFORMATION
  Report Type: 
  Country: None (occurrence: None)
  Receive Date: 20110711
  Receipt Date: 20110516
  Transmission Date: 20111222
  Serious: No
  Sender: FDA-Public Use
  Company Number: US-BAYER-2011-043519

PATIENT
  Sex: Male

DRUGS (3)
  1. ALEVE (CAPLET) [Suspect]
     Indication: BACK PAIN
     Dosage: 2 DF, Q4HR
     Route: 048
  2. ALEVE (CAPLET) [Suspect]
     Indication: ARTHRALGIA
  3. ALEVE (CAPLET) [Suspect]
     Indication: PAIN IN EXTREMITY

REACTIONS (1)
  - NO ADVERSE EVENT [None]
